FAERS Safety Report 8606984-X (Version None)
Quarter: 2012Q3

REPORT INFORMATION
  Report Type: 
  Country: None (occurrence: None)
  Receive Date: 20120820
  Receipt Date: 20120816
  Transmission Date: 20120928
  Serious: Yes (Other)
  Sender: FDA-Public Use
  Company Number: US-PFIZER INC-2012201831

PATIENT

DRUGS (2)
  1. CELEBREX [Suspect]
  2. XANAX [Suspect]

REACTIONS (2)
  - RHEUMATOID ARTHRITIS [None]
  - INTERVERTEBRAL DISC DEGENERATION [None]
